FAERS Safety Report 10152803 (Version 1)
Quarter: 2014Q2

REPORT INFORMATION
  Report Type: Spontaneous
  Country: US (occurrence: None)
  Receive Date: 20140502
  Receipt Date: 20140502
  Transmission Date: 20141212
  Serious: Yes (Other)
  Sender: FDA-Public Use
  Company Number: None

PATIENT
  Age: 8 Year
  Sex: Male
  Weight: 32.21 kg

DRUGS (2)
  1. GENERIC CONCERTA [Suspect]
     Indication: ATTENTION DEFICIT/HYPERACTIVITY DISORDER
     Dosage: ONE TAB EACH MORNING ?QD?ORAL
     Route: 048
     Dates: start: 20140212
  2. RISPERIDONE [Concomitant]

REACTIONS (2)
  - Product substitution issue [None]
  - Unevaluable event [None]
